FAERS Safety Report 16899729 (Version 1)
Quarter: 2019Q4

REPORT INFORMATION
  Report Type: Report from Study
  Country: US (occurrence: US)
  Receive Date: 20191009
  Receipt Date: 20191009
  Transmission Date: 20200122
  Serious: Yes (Hospitalization, Other)
  Sender: FDA-Public Use
  Company Number: US-GILEAD-2019-0432147

PATIENT
  Age: 32 Year
  Sex: Female

DRUGS (2)
  1. AZTREONAM LYSINE [Suspect]
     Active Substance: AZTREONAM LYSINE
     Indication: CYSTIC FIBROSIS
     Dosage: 75 MG, TID, 28 DAYS ON AND 28 DAYS OFF
     Route: 055
     Dates: start: 20170901
  2. AMIKACIN. [Concomitant]
     Active Substance: AMIKACIN
     Indication: CYSTIC FIBROSIS

REACTIONS (3)
  - Condition aggravated [Unknown]
  - Bacterial infection [Not Recovered/Not Resolved]
  - Forced expiratory volume abnormal [Not Recovered/Not Resolved]
